FAERS Safety Report 7608408-8 (Version None)
Quarter: 2011Q3

REPORT INFORMATION
  Report Type: 
  Country: None (occurrence: None)
  Receive Date: 20110714
  Receipt Date: 20110708
  Transmission Date: 20111222
  Serious: No
  Sender: FDA-Public Use
  Company Number: US-TEVA-290141USA

PATIENT
  Sex: Female
  Weight: 83.99 kg

DRUGS (3)
  1. PLAN B ONE-STEP [Suspect]
     Indication: POST COITAL CONTRACEPTION
     Dosage: 1.5 MILLIGRAM;
     Route: 048
     Dates: start: 20110708, end: 20110708
  2. MULTI-VITAMIN [Concomitant]
     Indication: ROUTINE HEALTH MAINTENANCE
  3. MELATONIN [Concomitant]
     Indication: SLEEP DISORDER

REACTIONS (2)
  - MENSTRUATION IRREGULAR [None]
  - FATIGUE [None]
